FAERS Safety Report 7384834-X (Version None)
Quarter: 2011Q1

REPORT INFORMATION
  Report Type: 
  Country: None (occurrence: None)
  Receive Date: 20110330
  Receipt Date: 20110228
  Transmission Date: 20110831
  Serious: Yes (Hospitalization, Other)
  Sender: FDA-Public Use
  Company Number: US-BAYER-2011-019242

PATIENT
  Age: 73 Year
  Sex: Female

DRUGS (5)
  1. PARACETAMOL [Concomitant]
     Dosage: UNK
     Dates: start: 20090101
  2. ROSUVASTATIN CALCIUM [Concomitant]
     Dosage: UNK
     Dates: start: 20090101
  3. OMEPRAZOLE [Concomitant]
     Dosage: UNK
     Dates: start: 20100101
  4. NAPROXEN SODIUM [Suspect]
     Indication: OSTEOARTHRITIS
     Dosage: 500 MG, BID
     Route: 048
     Dates: start: 20101129, end: 20101226
  5. RANITIDINE [Concomitant]
     Dosage: UNK
     Dates: start: 20070101

REACTIONS (6)
  - SPEECH DISORDER [None]
  - SWELLING FACE [None]
  - SWOLLEN TONGUE [None]
  - DYSPHAGIA [None]
  - ANAPHYLACTIC REACTION [None]
  - THROAT TIGHTNESS [None]
